FAERS Safety Report 7649481-0 (Version None)
Quarter: 2011Q3

REPORT INFORMATION
  Report Type: 
  Country: None (occurrence: None)
  Receive Date: 20110727
  Receipt Date: 20110711
  Transmission Date: 20111222
  Serious: Yes (Other)
  Sender: FDA-Public Use
  Company Number: 2011MA008653

PATIENT
  Age: 66 Year
  Sex: Female

DRUGS (13)
  1. BARBITURATE [Suspect]
     Indication: PAIN MANAGEMENT
  2. BARBITURATE [Suspect]
     Indication: SEDATIVE THERAPY
  3. DIAZEPAM [Suspect]
     Indication: PAIN MANAGEMENT
     Dosage: IV
     Route: 042
  4. DIAZEPAM [Suspect]
     Indication: SEDATIVE THERAPY
     Dosage: IV
     Route: 042
  5. NEUROLEPTIC [Suspect]
     Indication: SEDATIVE THERAPY
  6. NEUROLEPTIC [Suspect]
     Indication: PAIN MANAGEMENT
  7. LIDOCAINE [Suspect]
     Indication: ANAESTHESIA
     Dosage: 40 ML
  8. EPINEPHRINE [Suspect]
     Indication: ANAESTHESIA
     Dosage: 0.2 MG
  9. HYDROXYZINE HCL [Suspect]
     Indication: ANTIALLERGIC THERAPY
  10. DYAZIDE [Concomitant]
  11. OPIOID [Suspect]
     Indication: PAIN MANAGEMENT
  12. OPIOID [Suspect]
     Indication: SEDATIVE THERAPY
  13. PROPRANOLOL HCL [Suspect]
     Indication: HYPERTENSION
     Dosage: 10 MG; BID

REACTIONS (2)
  - HYPERTENSIVE CRISIS [None]
  - DRUG INTERACTION [None]
